FAERS Safety Report 10230043 (Version 1)
Quarter: 2014Q2

REPORT INFORMATION
  Report Type: Spontaneous
  Country: US (occurrence: None)
  Receive Date: 20140610
  Receipt Date: 20140610
  Transmission Date: 20141212
  Serious: No
  Sender: FDA-Public Use
  Company Number: None

PATIENT
  Age: 58 Year
  Sex: Female
  Weight: 127.01 kg

DRUGS (1)
  1. COLGATE TOOTHPASTE [Suspect]
     Indication: DENTAL CLEANING
     Dates: start: 20140607, end: 20140607

REACTIONS (6)
  - Oral discomfort [None]
  - Lip blister [None]
  - Dysgeusia [None]
  - Oral discomfort [None]
  - Oral mucosal blistering [None]
  - Product taste abnormal [None]
